FAERS Safety Report 6375266-1 (Version None)
Quarter: 2009Q3

REPORT INFORMATION
  Report Type: 
  Country: None (occurrence: None)
  Receive Date: 20090924
  Receipt Date: 20090915
  Transmission Date: 20100115
  Serious: Yes (Hospitalization)
  Sender: FDA-Public Use
  Company Number: A0775703A

PATIENT
  Age: 55 Year
  Sex: Male
  Weight: 95.5 kg

DRUGS (10)
  1. AVANDIA [Suspect]
     Dosage: 8MG PER DAY
     Route: 048
     Dates: start: 20000406, end: 20070301
  2. GLUCOPHAGE [Concomitant]
  3. PLAVIX [Concomitant]
  4. ASPIRIN [Concomitant]
  5. LIPITOR [Concomitant]
  6. HYDRALAZINE HCL [Concomitant]
  7. IMDUR [Concomitant]
  8. TOPROL-XL [Concomitant]
  9. NORVASC [Concomitant]
  10. COZAAR [Concomitant]

REACTIONS (6)
  - CARDIAC ARREST [None]
  - CEREBRAL ISCHAEMIA [None]
  - HYPOXIC ENCEPHALOPATHY [None]
  - MYOCARDIAL INFARCTION [None]
  - PERICARDIAL EFFUSION [None]
  - RENAL INJURY [None]
